FAERS Safety Report 16192850 (Version 2)
Quarter: 2024Q4

REPORT INFORMATION
  Report Type: Spontaneous
  Country: CZ (occurrence: CZ)
  Receive Date: 20190413
  Receipt Date: 20241122
  Transmission Date: 20250115
  Serious: Yes (Life-Threatening, Other)
  Sender: MERCK
  Company Number: CZ-009507513-1902CZE012131

PATIENT
  Age: 65 Year
  Sex: Female

DRUGS (2)
  1. PEMBROLIZUMAB [Suspect]
     Active Substance: PEMBROLIZUMAB
     Indication: Metastatic malignant melanoma
     Dosage: 200 MILLIGRAM/DOSE
     Dates: start: 201703, end: 201707
  2. PEMBROLIZUMAB [Suspect]
     Active Substance: PEMBROLIZUMAB
     Dosage: 200 MILLIGRAM/DOSE
     Dates: start: 201712

REACTIONS (2)
  - Hypophysitis [Unknown]
  - Autoimmune lung disease [Unknown]

NARRATIVE: CASE EVENT DATE: 20170101
